FAERS Safety Report 13255539 (Version 1)
Quarter: 2017Q1

REPORT INFORMATION
  Report Type: Spontaneous
  Country: US (occurrence: US)
  Receive Date: 20170218
  Receipt Date: 20170218
  Transmission Date: 20170428
  Serious: Yes (Disabling)
  Sender: FDA-Public Use
  Company Number: None

PATIENT
  Age: 37 Year
  Sex: Male
  Weight: 74.25 kg

DRUGS (1)
  1. CIPROFLOXACIN. [Suspect]
     Active Substance: CIPROFLOXACIN
     Indication: PROSTATITIS
     Dosage: ?          QUANTITY:2 TABLET(S);?
     Route: 048
     Dates: start: 20161022, end: 20161130

REACTIONS (7)
  - Anxiety [None]
  - General physical health deterioration [None]
  - Toxicity to various agents [None]
  - Bedridden [None]
  - Asthenia [None]
  - Mental status changes [None]
  - Abdominal discomfort [None]

NARRATIVE: CASE EVENT DATE: 20161222
